FAERS Safety Report 10614239 (Version 2)
Quarter: 2015Q1

REPORT INFORMATION
  Report Type: Spontaneous
  Country: US (occurrence: US)
  Receive Date: 20141128
  Receipt Date: 20150217
  Transmission Date: 20150720
  Serious: Yes (Death, Other)
  Sender: FDA-Public Use
  Company Number: US-ELI_LILLY_AND_COMPANY-US201411010341

PATIENT
  Sex: Male
  Weight: 75 kg

DRUGS (1)
  1. CYRAMZA [Suspect]
     Active Substance: RAMUCIRUMAB
     Indication: GASTROOESOPHAGEAL CANCER
     Dosage: 575 MG, EVERY 2 WEEKS
     Route: 042
     Dates: start: 20140523, end: 20140730

REACTIONS (1)
  - Malignant neoplasm progression [Fatal]
